FAERS Safety Report 13761816 (Version 1)
Quarter: 2017Q3

REPORT INFORMATION
  Report Type: Spontaneous
  Country: US (occurrence: US)
  Receive Date: 20170718
  Receipt Date: 20170718
  Transmission Date: 20171127
  Serious: No
  Sender: FDA-Public Use
  Company Number: US-CELGENEUS-USA-20170701769

PATIENT
  Age: 59 Year
  Sex: Male

DRUGS (1)
  1. OTEZLA [Suspect]
     Active Substance: APREMILAST
     Indication: PSORIATIC ARTHROPATHY
     Dosage: 30 MILLIGRAM
     Route: 048
     Dates: start: 20170301

REACTIONS (5)
  - Dyspepsia [Recovering/Resolving]
  - Headache [Recovered/Resolved]
  - Psoriatic arthropathy [Unknown]
  - Therapy non-responder [Unknown]
  - Gastric pH decreased [Recovering/Resolving]

NARRATIVE: CASE EVENT DATE: 20170301
